FAERS Safety Report 4943321-6 (Version None)
Quarter: 2006Q1

REPORT INFORMATION
  Report Type: 
  Country: None (occurrence: None)
  Receive Date: 20060309
  Receipt Date: 20060220
  Transmission Date: 20060701
  Serious: Yes (Hospitalization, Disabling)
  Sender: FDA-Public Use
  Company Number: 408667

PATIENT
  Age: 22 Year
  Sex: Female
  Weight: 64.9 kg

DRUGS (6)
  1. ACCUTANE [Suspect]
     Indication: ACNE CYSTIC
     Dosage: ORAL
     Route: 048
     Dates: start: 19920708, end: 20000622
  2. BIRTH CONTROL PILLS (ORAL CONTRACEPTIVE NOS) [Concomitant]
  3. ORTHO TRI-CYCLEN [Concomitant]
  4. PHENERGAN (PROMETHAZINE HYDROCHLORIDE) [Concomitant]
  5. ACETAMINOPHEN [Concomitant]
  6. ZANTAC [Concomitant]

REACTIONS (24)
  - BLINDNESS [None]
  - CHRONIC FATIGUE SYNDROME [None]
  - COLITIS ULCERATIVE [None]
  - CONSTIPATION [None]
  - DECREASED APPETITE [None]
  - DERMATITIS [None]
  - DRY SKIN [None]
  - DYSPEPSIA [None]
  - ECZEMA [None]
  - GASTRITIS [None]
  - GASTROINTESTINAL DISORDER [None]
  - GASTROOESOPHAGEAL REFLUX DISEASE [None]
  - HAEMATEMESIS [None]
  - HAEMORRHOIDS [None]
  - HEADACHE [None]
  - INFLAMMATORY BOWEL DISEASE [None]
  - INSOMNIA [None]
  - INTESTINAL HAEMORRHAGE [None]
  - LIP DRY [None]
  - PAIN [None]
  - PERIRECTAL ABSCESS [None]
  - VISUAL ACUITY REDUCED [None]
  - VOMITING [None]
  - WEIGHT DECREASED [None]
